FAERS Safety Report 10610261 (Version 3)
Quarter: 2015Q1

REPORT INFORMATION
  Report Type: Spontaneous
  Country: US (occurrence: US)
  Receive Date: 20141126
  Receipt Date: 20150220
  Transmission Date: 20150720
  Serious: Yes (Disabling)
  Sender: FDA-Public Use
  Company Number: US-009507513-1204USA03736

PATIENT
  Sex: Male
  Weight: 68.71 kg

DRUGS (1)
  1. PROPECIA [Suspect]
     Active Substance: FINASTERIDE
     Indication: ALOPECIA
     Dosage: 1 MG, QD
     Route: 048
     Dates: start: 20080626, end: 20080716

REACTIONS (30)
  - Depression [Not Recovered/Not Resolved]
  - Erectile dysfunction [Not Recovered/Not Resolved]
  - Sensory loss [Unknown]
  - Joint range of motion decreased [Unknown]
  - Irritable bowel syndrome [Unknown]
  - Spermatozoa abnormal [Unknown]
  - Back pain [Unknown]
  - Palpitations [Unknown]
  - Cognitive disorder [Not Recovered/Not Resolved]
  - Libido decreased [Not Recovered/Not Resolved]
  - Sexual dysfunction [Recovering/Resolving]
  - Vision blurred [Unknown]
  - Ejaculation failure [Not Recovered/Not Resolved]
  - Genital pain [Unknown]
  - Fatigue [Unknown]
  - Anxiety [Not Recovered/Not Resolved]
  - Ejaculation disorder [Not Recovered/Not Resolved]
  - Testicular retraction [Unknown]
  - Abdominal distension [Unknown]
  - Varicocele [Unknown]
  - Hyperlipidaemia [Unknown]
  - Self esteem decreased [Unknown]
  - Penis disorder [Unknown]
  - Eczema [Unknown]
  - Nausea [Unknown]
  - Dry mouth [Unknown]
  - Polyuria [Unknown]
  - Orgasm abnormal [Unknown]
  - Male genital atrophy [Unknown]
  - Testicular pain [Unknown]

NARRATIVE: CASE EVENT DATE: 20080716
